FAERS Safety Report 6317835-0 (Version None)
Quarter: 2009Q3

REPORT INFORMATION
  Report Type: 
  Country: None (occurrence: None)
  Receive Date: 20090821
  Receipt Date: 20090819
  Transmission Date: 20100115
  Serious: Yes (Other)
  Sender: FDA-Public Use
  Company Number: US-WYE-H10424009

PATIENT
  Sex: Male
  Weight: 85.35 kg

DRUGS (9)
  1. TORISEL [Suspect]
     Indication: RENAL CELL CARCINOMA
     Route: 042
     Dates: start: 20081229, end: 20090618
  2. ASPIRIN [Concomitant]
     Dosage: 81 MG
     Route: 048
  3. LIPITOR [Concomitant]
     Dosage: 10 MG
     Route: 048
  4. REGLAN [Concomitant]
     Dosage: NOT PROVIDED
  5. DEXAMETHASONE [Concomitant]
     Indication: NAUSEA
     Dosage: 1 MG IIII PRN NAUSEA
  6. LASIX [Concomitant]
  7. ZOFRAN [Concomitant]
     Dosage: PRN
  8. DIOVAN HCT [Concomitant]
     Dosage: 160/25 MG
  9. MORPHINE SULFATE [Concomitant]
     Dosage: 15 MG

REACTIONS (5)
  - MICROCYTIC ANAEMIA [None]
  - NAIL DISORDER [None]
  - OEDEMA PERIPHERAL [None]
  - PLEURAL EFFUSION [None]
  - SCROTAL OEDEMA [None]
